FAERS Safety Report 7789490-4 (Version None)
Quarter: 2011Q3

REPORT INFORMATION
  Report Type: 
  Country: None (occurrence: None)
  Receive Date: 20110930
  Receipt Date: 20110321
  Transmission Date: 20111222
  Serious: Yes (Hospitalization, Other)
  Sender: FDA-Public Use
  Company Number: US-BAYER-2010-000457

PATIENT
  Age: 49 Year
  Sex: Female
  Weight: 50.34 kg

DRUGS (17)
  1. ALBUTEROL [Concomitant]
  2. MILK THISTLE [Concomitant]
     Dosage: UNK
     Dates: start: 20100610
  3. KETOROLAC TROMETHAMINE [Concomitant]
     Dosage: 10 MG, UNK
  4. ASTHAPORT [Concomitant]
  5. TRAMADOL HCL [Concomitant]
     Dosage: 50 MG, UNK
     Dates: start: 20070105
  6. NAPRELAN [Concomitant]
     Dosage: 375 MG, UNK
     Dates: start: 20060612
  7. VIVELLE-DOT [Concomitant]
  8. IMITREX [Concomitant]
     Dosage: UNK
     Dates: start: 19960101, end: 20100101
  9. FLUOXETINE [Concomitant]
     Dosage: 20 MG, UNK
  10. LEXAPRO [Concomitant]
     Dosage: 20 MG, UNK
     Dates: start: 20070521
  11. YAZ [Suspect]
     Indication: PREMENSTRUAL SYNDROME
     Dosage: UNK
     Dates: start: 19960101, end: 20070101
  12. SINGULAIR [Concomitant]
  13. YASMIN [Suspect]
     Indication: PREMENSTRUAL SYNDROME
     Dosage: UNK
     Dates: start: 19960101, end: 20070101
  14. MAXALT [Concomitant]
     Dosage: UNK
     Dates: start: 19960101, end: 20100101
  15. CYMBALTA [Concomitant]
     Dosage: 20 MG, UNK
  16. AMITRIPTYLINE HCL [Concomitant]
     Dosage: 25 MG, UNK
  17. COLESTID [Concomitant]
     Dosage: 1 G, UNK
     Dates: start: 20070625

REACTIONS (6)
  - DEPRESSION [None]
  - GALLBLADDER DISORDER [None]
  - CHOLECYSTITIS CHRONIC [None]
  - CHOLELITHIASIS [None]
  - GALLBLADDER INJURY [None]
  - LIGAMENT INJURY [None]
